FAERS Safety Report 7224277-2 (Version None)
Quarter: 2011Q1

REPORT INFORMATION
  Report Type: 
  Country: None (occurrence: None)
  Receive Date: 20110105
  Receipt Date: 20101228
  Transmission Date: 20110831
  Serious: Yes (Other)
  Sender: FDA-Public Use
  Company Number: CIP10003177

PATIENT
  Age: 65 Year
  Sex: Female

DRUGS (7)
  1. FISH OIL (FISH OIL) [Concomitant]
  2. XANAX [Concomitant]
  3. ASPIRIN [Concomitant]
  4. CALTRATE 600 + D (CALCIUM CARBONATE, ERGOCALCIFEROL) [Concomitant]
  5. LIPITOR [Concomitant]
  6. ACTONEL [Suspect]
     Indication: OSTEOPOROSIS
     Dosage: 35 MG ONCE WEEKLY, ORAL
     Route: 048
  7. ERGOCALCIFEROL [Concomitant]

REACTIONS (6)
  - ATRIAL FIBRILLATION [None]
  - EYE INFECTION [None]
  - HIP FRACTURE [None]
  - DRUG INTOLERANCE [None]
  - HEADACHE [None]
  - VIITH NERVE PARALYSIS [None]
